FAERS Safety Report 4751994-6 (Version None)
Quarter: 2005Q3

REPORT INFORMATION
  Report Type: 
  Country: None (occurrence: None)
  Receive Date: 20050824
  Receipt Date: 20050322
  Transmission Date: 20060218
  Serious: Yes (Hospitalization, Other)
  Sender: FDA-Public Use
  Company Number: US-MERCK-0503USA04182

PATIENT
  Age: 81 Year
  Sex: Male
  Weight: 68 kg

DRUGS (3)
  1. VIOXX [Suspect]
     Indication: OSTEOARTHRITIS
     Route: 048
     Dates: start: 20010801, end: 20040930
  2. TRENTAL [Concomitant]
     Route: 048
  3. ISORDIL [Concomitant]
     Route: 065

REACTIONS (21)
  - ABDOMINAL DISTENSION [None]
  - BLOOD CREATININE INCREASED [None]
  - BLOOD PRESSURE INADEQUATELY CONTROLLED [None]
  - BLOOD UREA INCREASED [None]
  - BONE PAIN [None]
  - CARDIAC FAILURE CONGESTIVE [None]
  - CARDIAC VALVE DISEASE [None]
  - CARDIOVASCULAR DISORDER [None]
  - CEREBROVASCULAR ACCIDENT [None]
  - CHEST PAIN [None]
  - DYSURIA [None]
  - FLATULENCE [None]
  - HYPERLIPIDAEMIA [None]
  - LACUNAR INFARCTION [None]
  - MUSCLE SPASMS [None]
  - PLEURAL EFFUSION [None]
  - RENAL IMPAIRMENT [None]
  - RETINAL ARTERY OCCLUSION [None]
  - TREATMENT NONCOMPLIANCE [None]
  - VIRAL UPPER RESPIRATORY TRACT INFECTION [None]
  - WEIGHT DECREASED [None]
